FAERS Safety Report 23188641 (Version 3)
Quarter: 2024Q1

REPORT INFORMATION
  Report Type: Spontaneous
  Country: US (occurrence: US)
  Receive Date: 20231115
  Receipt Date: 20240311
  Transmission Date: 20240410
  Serious: No
  Sender: FDA-Public Use
  Company Number: US-PFIZER INC-202300359466

PATIENT
  Age: 63 Year
  Sex: Female

DRUGS (2)
  1. ELREXFIO [Suspect]
     Active Substance: ELRANATAMAB-BCMM
     Indication: Neoplasm malignant
     Dosage: UNK , WEEKLY
     Dates: start: 20231002, end: 20231109
  2. ELREXFIO [Suspect]
     Active Substance: ELRANATAMAB-BCMM
     Dosage: PATIENT IS ON ONCE PER MONTH INJECTIONS VERSUS EVERY WEEK

REACTIONS (7)
  - Rash [Not Recovered/Not Resolved]
  - Skin exfoliation [Not Recovered/Not Resolved]
  - Viral infection [Not Recovered/Not Resolved]
  - Dysphonia [Recovering/Resolving]
  - Sinusitis [Recovering/Resolving]
  - Laboratory test abnormal [Not Recovered/Not Resolved]
  - Off label use [Unknown]

NARRATIVE: CASE EVENT DATE: 20231205
